FAERS Safety Report 10543416 (Version 1)
Quarter: 2014Q4

REPORT INFORMATION
  Report Type: Spontaneous
  Country: US (occurrence: None)
  Receive Date: 20141010
  Receipt Date: 20141010
  Transmission Date: 20150529
  Serious: Yes (Other)
  Sender: FDA-Public Use
  Company Number: 163-POMAL-14074105

PATIENT
  Age: 63 Year
  Sex: Female
  Weight: 107.68 kg

DRUGS (1)
  1. POMALYST [Suspect]
     Active Substance: POMALIDOMIDE
     Indication: PLASMA CELL MYELOMA
     Route: 048
     Dates: start: 20140603

REACTIONS (3)
  - Asthenia [None]
  - Arthralgia [None]
  - Lymphadenopathy [None]

NARRATIVE: CASE EVENT DATE: 2014
